FAERS Safety Report 22093887 (Version 2)
Quarter: 2023Q1

REPORT INFORMATION
  Report Type: Spontaneous
  Country: DE (occurrence: DE)
  Receive Date: 20230314
  Receipt Date: 20230320
  Transmission Date: 20230417
  Serious: Yes (Other)
  Sender: FDA-Public Use
  Company Number: DE-002147023-NVSC2022DE100266

PATIENT
  Sex: Female
  Weight: 46 kg

DRUGS (5)
  1. EXJADE [Suspect]
     Active Substance: DEFERASIROX
     Indication: Red blood cell transfusion
     Dosage: 630 MG, QD
     Route: 065
     Dates: start: 20220108, end: 20220425
  2. EXJADE [Suspect]
     Active Substance: DEFERASIROX
     Indication: Myelodysplastic syndrome
     Dosage: 630 MG, QD
     Route: 065
     Dates: start: 20220526
  3. EXJADE [Suspect]
     Active Substance: DEFERASIROX
     Dosage: 630 MG, QD
     Route: 065
  4. LEVOTHYROXINE [Suspect]
     Active Substance: LEVOTHYROXINE
     Indication: Autoimmune thyroiditis
     Dosage: UNK
     Route: 065
  5. ASPIRIN [Concomitant]
     Active Substance: ASPIRIN
     Indication: Haemorrhage
     Dosage: UNK
     Route: 065

REACTIONS (21)
  - Renal impairment [Unknown]
  - Haemoglobin decreased [Unknown]
  - Dysgeusia [Recovered/Resolved]
  - Arthropathy [Not Recovered/Not Resolved]
  - Mental disorder [Not Recovered/Not Resolved]
  - Night sweats [Not Recovered/Not Resolved]
  - Bone marrow oedema [Unknown]
  - Mobility decreased [Not Recovered/Not Resolved]
  - Renal pain [Recovered/Resolved]
  - Osteoarthritis [Unknown]
  - Malaise [Unknown]
  - Accident [Unknown]
  - Dysgeusia [Not Recovered/Not Resolved]
  - Weight decreased [Not Recovered/Not Resolved]
  - Osteoporosis [Unknown]
  - Gastric disorder [Unknown]
  - Serum ferritin increased [Not Recovered/Not Resolved]
  - Abdominal pain upper [Not Recovered/Not Resolved]
  - Gastritis [Unknown]
  - Back pain [Unknown]
  - Drug ineffective [Unknown]

NARRATIVE: CASE EVENT DATE: 20220101
